FAERS Safety Report 6334897-5 (Version None)
Quarter: 2009Q3

REPORT INFORMATION
  Report Type: 
  Country: None (occurrence: None)
  Receive Date: 20090831
  Receipt Date: 20090821
  Transmission Date: 20100115
  Serious: Yes (Hospitalization)
  Sender: FDA-Public Use
  Company Number: JP-ABBOTT-08P-087-0482988-00

PATIENT
  Age: 87 Year
  Sex: Male

DRUGS (6)
  1. LEUPROLIDE ACETATE [Suspect]
     Indication: PROSTATE CANCER STAGE III
     Route: 058
     Dates: start: 20060727, end: 20071018
  2. LEUPROLIDE ACETATE [Suspect]
     Route: 058
     Dates: end: 20060629
  3. HARNAL [Concomitant]
     Indication: BENIGN PROSTATIC HYPERPLASIA
     Route: 048
     Dates: start: 20060907, end: 20071129
  4. BUPVERINE [Concomitant]
     Indication: POLLAKIURIA
     Route: 048
     Dates: start: 20061019
  5. BUPVERINE [Concomitant]
     Indication: NEUROGENIC BLADDER
  6. VESICARE [Concomitant]
     Indication: HYPERTONIC BLADDER
     Route: 048
     Dates: start: 20070726, end: 20071129

REACTIONS (1)
  - PNEUMONIA [None]
